FAERS Safety Report 8301836-7 (Version None)
Quarter: 2012Q2

REPORT INFORMATION
  Report Type: 
  Country: None (occurrence: None)
  Receive Date: 20120420
  Receipt Date: 20120418
  Transmission Date: 20120825
  Serious: Yes (Death, Other)
  Sender: FDA-Public Use
  Company Number: AU-B.I. PHARMACEUTICALS,INC./RIDGEFIELD-2011-AU-02373AU

PATIENT
  Sex: Male
  Weight: 78 kg

DRUGS (3)
  1. PRADAXA [Suspect]
     Dosage: 220 MG
  2. PROTON PUMP INHIBITORS [Concomitant]
     Indication: CARDIAC FAILURE CHRONIC
  3. DIURETIC [Concomitant]
     Indication: CARDIAC FAILURE CHRONIC

REACTIONS (3)
  - RESPIRATORY FAILURE [None]
  - HYPOVOLAEMIA [None]
  - LOWER RESPIRATORY TRACT INFECTION [None]
